FAERS Safety Report 6853274-1 (Version None)
Quarter: 2010Q3

REPORT INFORMATION
  Report Type: 
  Country: None (occurrence: None)
  Receive Date: 20100717
  Receipt Date: 20080119
  Transmission Date: 20110219
  Serious: No
  Sender: FDA-Public Use
  Company Number: US-PFIZER INC-2007101013

PATIENT
  Age: 50 Year
  Sex: Female
  Weight: 57.272 kg

DRUGS (5)
  1. CHANTIX [Suspect]
     Indication: SMOKING CESSATION THERAPY
     Route: 048
     Dates: start: 20071026
  2. WELLBUTRIN [Suspect]
  3. DIAZEPAM [Concomitant]
     Dates: end: 20070101
  4. AMBIEN [Concomitant]
  5. BUSPIRONE [Concomitant]

REACTIONS (6)
  - FEELING COLD [None]
  - HYPERSENSITIVITY [None]
  - IRRITABILITY [None]
  - MIGRAINE [None]
  - TREMOR [None]
  - UNEVALUABLE EVENT [None]
